FAERS Safety Report 8494363-8 (Version None)
Quarter: 2012Q2

REPORT INFORMATION
  Report Type: 
  Country: None (occurrence: None)
  Receive Date: 20120405
  Receipt Date: 20090122
  Transmission Date: 20120825
  Serious: Yes (Other)
  Sender: FDA-Public Use
  Company Number: PHEH2009US01069

PATIENT
  Sex: Male

DRUGS (2)
  1. RECLAST [Suspect]
     Dosage: 5 MG, ONCE/SINGLE, INFUSION
  2. CONTRAST MEDIA (NO INGREDIENTS/SUBSTANCES) [Suspect]

REACTIONS (1)
  - RENAL FAILURE ACUTE [None]
